FAERS Safety Report 8871794 (Version 3)
Quarter: 2013Q1

REPORT INFORMATION
  Report Type: Report from Study
  Country: JP (occurrence: JP)
  Receive Date: 20121029
  Receipt Date: 20130206
  Transmission Date: 20140127
  Serious: Yes (Death)
  Sender: FDA-Public Use
  Company Number: JP-009507513-1210JPN012850

PATIENT
  Age: 57 Year
  Sex: Female
  Weight: 47 kg

DRUGS (4)
  1. TEMODAL [Suspect]
     Indication: ANAPLASTIC ASTROCYTOMA
     Dosage: 75 MG/M2, QD
     Route: 041
     Dates: start: 20111226, end: 20120124
  2. TEMODAL [Suspect]
     Dosage: 150 MG/M2, QD
     Route: 041
     Dates: start: 20120502, end: 20120506
  3. TEMODAL [Suspect]
     Indication: ANAPLASTIC ASTROCYTOMA
     Dosage: 75 MG/M2, QD
     Route: 048
     Dates: start: 20120125, end: 20120209
  4. WARFARIN [Concomitant]
     Dosage: FORMULATION:POR
     Route: 048
     Dates: start: 20120117, end: 20120320

REACTIONS (2)
  - Disease progression [Fatal]
  - Lymphocyte count decreased [Not Recovered/Not Resolved]
